FAERS Safety Report 21404167 (Version 3)
Quarter: 2022Q4

REPORT INFORMATION
  Report Type: Spontaneous
  Country: JP (occurrence: None)
  Receive Date: 20221003
  Receipt Date: 20221031
  Transmission Date: 20230112
  Serious: Yes (Hospitalization)
  Sender: FDA-Public Use
  Company Number: JP-ROCHE-3192002

PATIENT
  Age: 11 Year
  Sex: Male
  Weight: 32 kg

DRUGS (3)
  1. RITUXIMAB [Suspect]
     Active Substance: RITUXIMAB
     Indication: Nephrotic syndrome
     Dosage: AT 11:29 ON 17/AUG/2022, THE PATIENT WAS INITIATED ON RITUXIMAB (IV, 61 MG)
     Route: 041
     Dates: start: 20200805, end: 20200805
  2. RITUXIMAB [Suspect]
     Active Substance: RITUXIMAB
     Route: 041
     Dates: start: 20220817, end: 20220817
  3. PREDONINE [Concomitant]
     Active Substance: PREDNISOLONE
     Indication: Nephrotic syndrome
     Route: 048
     Dates: start: 20220801

REACTIONS (7)
  - Hypoxia [Recovered/Resolved]
  - Eczema [Recovered/Resolved]
  - Oropharyngeal discomfort [Unknown]
  - Flushing [Unknown]
  - Back pain [Unknown]
  - Malaise [Unknown]
  - Rash [Unknown]

NARRATIVE: CASE EVENT DATE: 20200805
